FAERS Safety Report 7354771-5 (Version None)
Quarter: 2011Q1

REPORT INFORMATION
  Report Type: 
  Country: None (occurrence: None)
  Receive Date: 20110301
  Receipt Date: 20110211
  Transmission Date: 20110831
  Serious: Yes (Other)
  Sender: FDA-Public Use
  Company Number: AEUSA201000410

PATIENT
  Age: 67 Year
  Sex: Female
  Weight: 107.9561 kg

DRUGS (17)
  1. LOSARTAN POTASSIUM [Concomitant]
  2. NYSTATIN [Concomitant]
  3. TYLENOL (CAPLET) [Concomitant]
  4. HYDROCHLOROTHIAZIDE [Concomitant]
  5. LANTUS [Concomitant]
  6. CALCIUM [Concomitant]
  7. CIMETIDINE [Suspect]
     Indication: IRRITABLE BOWEL SYNDROME
     Dosage: 200 MG;
     Dates: end: 20101201
  8. EFFEXOR [Concomitant]
  9. LOPRESSOR [Concomitant]
  10. ONDANSETRON [Concomitant]
  11. ASPIRIN /00002703/ [Concomitant]
  12. SYNTHROID [Concomitant]
  13. GAMUNEX [Suspect]
     Indication: MYASTHENIA GRAVIS
     Dosage: 125 GM; QM; IV
     Route: 042
     Dates: start: 20080520, end: 20101027
  14. ALBUTEROL [Concomitant]
  15. HYDRALAZINE HCL [Concomitant]
  16. LIPITOR [Concomitant]
  17. MESTINON [Concomitant]

REACTIONS (5)
  - DIABETIC NEPHROPATHY [None]
  - DISEASE PROGRESSION [None]
  - BLOOD GLUCOSE INCREASED [None]
  - PROTEINURIA [None]
  - GLUCOSE URINE PRESENT [None]
